FAERS Safety Report 5662909-0 (Version None)
Quarter: 2008Q1

REPORT INFORMATION
  Report Type: 
  Country: None (occurrence: None)
  Receive Date: 20080307
  Receipt Date: 20080228
  Transmission Date: 20080703
  Serious: Yes (Other)
  Sender: FDA-Public Use
  Company Number: 73103

PATIENT
  Age: 48 Year
  Sex: Male
  Weight: 90.7194 kg

DRUGS (5)
  1. MINOXIDIL [Suspect]
     Indication: ALOPECIA
     Dosage: 1 ML TWICE A DAY TOPICALLY
     Route: 061
     Dates: start: 20070828, end: 20071128
  2. VALIUM [Concomitant]
  3. ATENOLOL [Concomitant]
  4. OVER THE COUNTER ANTIHISTAMINE TABLET FOR SEASONAL ALLERGIES) [Concomitant]
  5. MECLIZINE [Concomitant]

REACTIONS (5)
  - CONCUSSION [None]
  - FALL [None]
  - GAIT DISTURBANCE [None]
  - HEADACHE [None]
  - VERTIGO [None]
